FAERS Safety Report 9206729 (Version 1)
Quarter: 2013Q1

REPORT INFORMATION
  Report Type: Spontaneous
  Country: US (occurrence: None)
  Receive Date: 20120731
  Receipt Date: 20120731
  Transmission Date: 20140127
  Serious: No
  Sender: FDA-Public Use
  Company Number: 2012MZ000342

PATIENT
  Age: 46 Year
  Sex: Female

DRUGS (2)
  1. XEOMIN [Suspect]
     Indication: SKIN WRINKLING
     Dosage: 12 U
     Dates: start: 20120612, end: 20120612
  2. PLAQUENIL /00072603/ [Concomitant]

REACTIONS (4)
  - Injection site warmth [None]
  - Skin tightness [None]
  - Injection site swelling [None]
  - Injection site erythema [None]
